FAERS Safety Report 6115869-2 (Version None)
Quarter: 2009Q1

REPORT INFORMATION
  Report Type: 
  Country: None (occurrence: None)
  Receive Date: 20090311
  Receipt Date: 20090303
  Transmission Date: 20090719
  Serious: Yes (Other)
  Sender: FDA-Public Use
  Company Number: 186709USA

PATIENT
  Age: 30 Year
  Sex: Female

DRUGS (6)
  1. CLARAVIS [Suspect]
     Dosage: SEE IMAGE
     Route: 048
     Dates: start: 20081216, end: 20090101
  2. CLARAVIS [Suspect]
     Dosage: SEE IMAGE
     Route: 048
     Dates: start: 20090201, end: 20090201
  3. CLARAVIS [Suspect]
     Dosage: SEE IMAGE
     Route: 048
     Dates: start: 20090201, end: 20090201
  4. ISOSTRETINOIN [Suspect]
     Dosage: 40 MG (40 MG, 2 IN 2 D), ORAL; 60 MG (40 MG, 3 IN 2 D), ORAL
     Route: 048
     Dates: start: 20080916
  5. ISOSTRETINOIN [Suspect]
     Dosage: 40 MG (40 MG, 2 IN 2 D), ORAL; 60 MG (40 MG, 3 IN 2 D), ORAL
     Route: 048
     Dates: start: 20080916
  6. HORMONE PATCH [Concomitant]

REACTIONS (3)
  - DRUG EXPOSURE DURING PREGNANCY [None]
  - NAUSEA [None]
  - UNINTENDED PREGNANCY [None]
